FAERS Safety Report 8085033-9 (Version None)
Quarter: 2012Q1

REPORT INFORMATION
  Report Type: 
  Country: None (occurrence: None)
  Receive Date: 20120128
  Receipt Date: 20110321
  Transmission Date: 20120608
  Serious: No
  Sender: FDA-Public Use
  Company Number: US-ABBOTT-11P-163-0711094-00

PATIENT
  Sex: Female
  Weight: 69.008 kg

DRUGS (3)
  1. ORTHO TRI-CYCLEN LO [Concomitant]
     Indication: CONTRACEPTION
  2. DEPAKOTE [Concomitant]
     Indication: MIGRAINE
  3. HUMIRA [Suspect]
     Indication: JUVENILE ARTHRITIS
     Dates: start: 20080601

REACTIONS (3)
  - WRONG TECHNIQUE IN DRUG USAGE PROCESS [None]
  - INCORRECT DOSE ADMINISTERED [None]
  - INJECTION SITE PAIN [None]
